FAERS Safety Report 20477845 (Version 1)
Quarter: 2022Q1

REPORT INFORMATION
  Report Type: Spontaneous
  Country: US (occurrence: US)
  Receive Date: 20220216
  Receipt Date: 20220216
  Transmission Date: 20220423
  Serious: No
  Sender: FDA-Public Use
  Company Number: US-GLAND PHARMA LIMITED-2021US008902

PATIENT

DRUGS (1)
  1. NOREPINEPHRINE BITARTRATE [Suspect]
     Active Substance: NOREPINEPHRINE BITARTRATE
     Indication: Product used for unknown indication
     Dosage: 40 UG, Q1HR (150 ML/HR)
     Route: 065

REACTIONS (3)
  - Blood pressure fluctuation [Unknown]
  - Incorrect route of product administration [Unknown]
  - Incorrect drug administration rate [Unknown]
